FAERS Safety Report 9511473 (Version 1)
Quarter: 2013Q3

REPORT INFORMATION
  Report Type: Spontaneous
  Country: US (occurrence: US)
  Receive Date: 20130910
  Receipt Date: 20130910
  Transmission Date: 20140515
  Serious: No
  Sender: FDA-Public Use
  Company Number: US-009507513-1308USA007190

PATIENT
  Sex: 0
  Weight: 78.5 kg

DRUGS (2)
  1. NEXPLANON [Suspect]
     Dosage: 68 MG, 1 ROD/3 YEARS
     Route: 059
     Dates: start: 20130813, end: 20130813
  2. NEXPLANON [Suspect]
     Dosage: 68 MG, 1 ROD/3 YEARS
     Route: 059
     Dates: start: 20130813

REACTIONS (3)
  - Device difficult to use [Unknown]
  - Product quality issue [Unknown]
  - No adverse event [Unknown]
